FAERS Safety Report 9450224 (Version 3)
Quarter: 2013Q4

REPORT INFORMATION
  Report Type: Spontaneous
  Country: AU (occurrence: AU)
  Receive Date: 20130809
  Receipt Date: 20131101
  Transmission Date: 20140711
  Serious: Yes (Other)
  Sender: FDA-Public Use
  Company Number: AU-JNJFOC-20130717876

PATIENT
  Age: 58 Year
  Sex: Female
  Weight: 74 kg

DRUGS (5)
  1. STELARA [Suspect]
     Indication: PSORIASIS
     Dosage: INJECTION NO 4
     Route: 058
     Dates: start: 20130319
  2. STELARA [Suspect]
     Indication: PSORIASIS
     Dosage: INJECTION NO 5
     Route: 058
     Dates: start: 20130711
  3. STELARA [Suspect]
     Indication: PSORIASIS
     Dosage: 18-JUL
     Route: 058
     Dates: start: 20120830
  4. STELARA [Suspect]
     Indication: PSORIASIS
     Dosage: INJECTION NO 3
     Route: 058
     Dates: start: 20130117
  5. TERBINAFINE [Suspect]
     Indication: PSORIASIS
     Route: 065
     Dates: start: 201305

REACTIONS (6)
  - Arthralgia [Recovering/Resolving]
  - Rash [Recovering/Resolving]
  - Rash pustular [Recovering/Resolving]
  - Drug interaction [Unknown]
  - Malaise [Recovering/Resolving]
  - Nail dystrophy [Recovering/Resolving]
